FAERS Safety Report 10730844 (Version 1)
Quarter: 2015Q1

REPORT INFORMATION
  Report Type: Spontaneous
  Country: US (occurrence: US)
  Receive Date: 20150122
  Receipt Date: 20150122
  Transmission Date: 20150721
  Serious: Yes (Death)
  Sender: FDA-Public Use
  Company Number: US-BAUSCH-BL-2015-000972

PATIENT
  Age: 85 Year
  Sex: Female

DRUGS (11)
  1. NITROGLYCERIN. [Suspect]
     Active Substance: NITROGLYCERIN
     Indication: PRODUCT USED FOR UNKNOWN INDICATION
  2. AMLODIPINE [Suspect]
     Active Substance: AMLODIPINE BESYLATE
     Indication: PRODUCT USED FOR UNKNOWN INDICATION
  3. WARFARIN [Suspect]
     Active Substance: WARFARIN
     Indication: PRODUCT USED FOR UNKNOWN INDICATION
  4. DILTIAZEM HYDROCHLORIDE EXTENDED RELEASE [Suspect]
     Active Substance: DILTIAZEM HYDROCHLORIDE
     Indication: PRODUCT USED FOR UNKNOWN INDICATION
  5. ZOLPIDEM [Suspect]
     Active Substance: ZOLPIDEM\ZOLPIDEM TARTRATE
     Indication: PRODUCT USED FOR UNKNOWN INDICATION
  6. LISINOPRIL. [Suspect]
     Active Substance: LISINOPRIL
     Indication: PRODUCT USED FOR UNKNOWN INDICATION
  7. SERTRALINE [Suspect]
     Active Substance: SERTRALINE HYDROCHLORIDE
     Indication: PRODUCT USED FOR UNKNOWN INDICATION
  8. FUROSEMIDE. [Suspect]
     Active Substance: FUROSEMIDE
     Indication: PRODUCT USED FOR UNKNOWN INDICATION
  9. DONEPEZIL [Suspect]
     Active Substance: DONEPEZIL
     Indication: PRODUCT USED FOR UNKNOWN INDICATION
  10. ATENOLOL. [Suspect]
     Active Substance: ATENOLOL
     Indication: PRODUCT USED FOR UNKNOWN INDICATION
  11. ATORVASTATIN [Suspect]
     Active Substance: ATORVASTATIN
     Indication: PRODUCT USED FOR UNKNOWN INDICATION

REACTIONS (1)
  - Death [Fatal]

NARRATIVE: CASE EVENT DATE: 2013
